FAERS Safety Report 6077743-X (Version None)
Quarter: 2009Q1

REPORT INFORMATION
  Report Type: 
  Country: None (occurrence: None)
  Receive Date: 20090211
  Receipt Date: 20090202
  Transmission Date: 20090719
  Serious: Yes (Death)
  Sender: FDA-Public Use
  Company Number: TCI2009A00360

PATIENT
  Age: 38 Year
  Sex: Male

DRUGS (2)
  1. ACTOS [Suspect]
     Dosage: 15 MG (15 MG, 1 D)
     Route: 048
     Dates: start: 20081109
  2. CALCIUM CHANNEL BLOCKERS [Concomitant]

REACTIONS (1)
  - SUDDEN DEATH [None]
